FAERS Safety Report 4878729-0 (Version None)
Quarter: 2005Q4

REPORT INFORMATION
  Report Type: 
  Country: None (occurrence: None)
  Receive Date: 20051209
  Receipt Date: 20050512
  Transmission Date: 20060501
  Serious: Yes (Other)
  Sender: FDA-Public Use
  Company Number: USA-2005-0020239

PATIENT
  Age: 42 Year
  Sex: Male

DRUGS (4)
  1. OXYCONTIN [Suspect]
     Dosage: 640 MG, Q12H; ORAL
     Route: 048
  2. KLONOPIN [Concomitant]
  3. ELAVIL [Concomitant]
  4. MIGRANAL [Concomitant]

REACTIONS (3)
  - DRUG DEPENDENCE [None]
  - DRUG WITHDRAWAL SYNDROME [None]
  - ERECTILE DYSFUNCTION [None]
